FAERS Safety Report 11455920 (Version 3)
Quarter: 2016Q1

REPORT INFORMATION
  Report Type: Report from Study
  Country: FR (occurrence: FR)
  Receive Date: 20150903
  Receipt Date: 20160125
  Transmission Date: 20160525
  Serious: Yes (Other)
  Sender: FDA-Public Use
  Company Number: FR-BRISTOL-MYERS SQUIBB COMPANY-BMS-2015-057014

PATIENT
  Age: 51 Year
  Sex: Male
  Weight: 102 kg

DRUGS (3)
  1. DASATINIB [Suspect]
     Active Substance: DASATINIB
     Dosage: 1 UNK, UNK
     Route: 065
     Dates: start: 20141201, end: 20150701
  2. DASATINIB [Suspect]
     Active Substance: DASATINIB
     Indication: CHRONIC MYELOID LEUKAEMIA
     Dosage: 1 DF, UNK
     Route: 065
     Dates: start: 20120414, end: 20141202
  3. DASATINIB [Suspect]
     Active Substance: DASATINIB
     Dosage: 1 UNK, UNK
     Route: 065
     Dates: start: 20150705

REACTIONS (1)
  - Pleurisy [Recovered/Resolved]

NARRATIVE: CASE EVENT DATE: 20140820
